FAERS Safety Report 5370977-9 (Version None)
Quarter: 2007Q2

REPORT INFORMATION
  Report Type: 
  Country: None (occurrence: None)
  Receive Date: 20070626
  Receipt Date: 20070618
  Transmission Date: 20071010
  Serious: Yes (Hospitalization, Other)
  Sender: FDA-Public Use
  Company Number: GB-PFIZER INC-2007050264

PATIENT
  Age: 36 Year
  Sex: Male

DRUGS (16)
  1. SOMATROPIN [Suspect]
  2. ANASTROZOLE [Concomitant]
  3. GONADOTROPIN CHORIONIC [Concomitant]
  4. CLENBUTEROL HYDROCHLORIDE [Concomitant]
  5. DECA-DURABOLIN [Concomitant]
  6. FLUOXYMESTERONE [Concomitant]
  7. INSULIN [Concomitant]
  8. LIOTHYRONINE SODIUM [Concomitant]
  9. MESTEROLONE [Concomitant]
  10. OXYMETHOLONE [Concomitant]
  11. SPIRONOLACTONE [Concomitant]
  12. STANOZOLOL [Concomitant]
  13. TESTOSTERONE ENANTHATE ^THERAMEX^ [Concomitant]
  14. TESTOSTERONE PROPIONATE [Concomitant]
  15. METANDROSTENOLONE [Concomitant]
  16. TRENBOLONE [Concomitant]

REACTIONS (6)
  - ABDOMINAL PAIN UPPER [None]
  - DIABETES MELLITUS [None]
  - HEPATITIS [None]
  - HYPERGLYCAEMIA [None]
  - INTENTIONAL DRUG MISUSE [None]
  - RENAL FAILURE ACUTE [None]
